FAERS Safety Report 8007516-X (Version None)
Quarter: 2011Q4

REPORT INFORMATION
  Report Type: 
  Country: None (occurrence: None)
  Receive Date: 20111227
  Receipt Date: 20111213
  Transmission Date: 20120403
  Serious: Yes (Hospitalization)
  Sender: FDA-Public Use
  Company Number: DE-ELI_LILLY_AND_COMPANY-DE201112003593

PATIENT
  Sex: Female

DRUGS (3)
  1. FORTEO [Suspect]
     Indication: OSTEOPOROSIS
     Dosage: UNK, QD
     Route: 058
     Dates: start: 20110520
  2. MARCUMAR [Concomitant]
  3. VITAMIN D [Concomitant]
     Dosage: UNK, BID

REACTIONS (2)
  - IRON DEFICIENCY [None]
  - GASTRITIS [None]
